FAERS Safety Report 6236541-4 (Version None)
Quarter: 2009Q2

REPORT INFORMATION
  Report Type: 
  Country: None (occurrence: None)
  Receive Date: 20090619
  Receipt Date: 20090610
  Transmission Date: 20091009
  Serious: Yes (Hospitalization)
  Sender: FDA-Public Use
  Company Number: B0578284A

PATIENT
  Sex: Female

DRUGS (3)
  1. NARAMIG [Suspect]
     Indication: MIGRAINE
     Route: 048
     Dates: start: 20010101, end: 20081101
  2. BI-PROFENID [Suspect]
     Indication: MIGRAINE
     Route: 048
     Dates: start: 20010101, end: 20081101
  3. LUTERAN [Suspect]
     Indication: DRUG USE FOR UNKNOWN INDICATION
     Route: 048
     Dates: end: 20081101

REACTIONS (4)
  - ABDOMINAL PAIN UPPER [None]
  - COLITIS ISCHAEMIC [None]
  - COLITIS ULCERATIVE [None]
  - COLONIC STENOSIS [None]
